FAERS Safety Report 6679597-7 (Version None)
Quarter: 2010Q2

REPORT INFORMATION
  Report Type: 
  Country: None (occurrence: None)
  Receive Date: 20100413
  Receipt Date: 20100406
  Transmission Date: 20101027
  Serious: Yes (Hospitalization, Disabling)
  Sender: FDA-Public Use
  Company Number: AU-WYE-G05706110

PATIENT
  Sex: Male

DRUGS (1)
  1. TORISEL [Suspect]
     Indication: RENAL CELL CARCINOMA
     Dosage: 25MG INFUSION 1 A WEEK, HAS HAD 8 DOSES OF TORISEL
     Dates: start: 20100101

REACTIONS (11)
  - ASTHENIA [None]
  - CONDITION AGGRAVATED [None]
  - CONJUNCTIVITIS [None]
  - DECREASED APPETITE [None]
  - EPISTAXIS [None]
  - FATIGUE [None]
  - NASAL DISCOMFORT [None]
  - NAUSEA [None]
  - REFLUX OESOPHAGITIS [None]
  - SOMNOLENCE [None]
  - TYPE 2 DIABETES MELLITUS [None]
